FAERS Safety Report 7817338-8 (Version None)
Quarter: 2011Q4

REPORT INFORMATION
  Report Type: 
  Country: None (occurrence: None)
  Receive Date: 20111014
  Receipt Date: 20111012
  Transmission Date: 20120403
  Serious: Yes (Hospitalization)
  Sender: FDA-Public Use
  Company Number: DL2011-0795

PATIENT
  Age: 29 Year
  Sex: Female

DRUGS (5)
  1. MISOPROSTOL [Suspect]
     Dosage: 400 MCG, ORAL 800 MCG, BUCCAL 400 MCG, BUCCAL
     Route: 048
     Dates: start: 20110714
  2. MISOPROSTOL [Suspect]
     Dosage: 400 MCG, ORAL 800 MCG, BUCCAL 400 MCG, BUCCAL
     Route: 048
     Dates: start: 20110815
  3. MISOPROSTOL [Suspect]
     Dosage: 400 MCG, ORAL 800 MCG, BUCCAL 400 MCG, BUCCAL
     Route: 048
     Dates: start: 20110812
  4. DOXYCYCLINE [Concomitant]
  5. MIFEPRISTONE (MIFEPREX) [Suspect]
     Indication: ABORTION INDUCED
     Dosage: 600 MG, ORAL
     Route: 048
     Dates: start: 20110712

REACTIONS (4)
  - SYNCOPE [None]
  - ASTHENIA [None]
  - ANAEMIA [None]
  - HAEMORRHAGE [None]
